FAERS Safety Report 16793213 (Version 1)
Quarter: 2019Q3

REPORT INFORMATION
  Report Type: Report from Study
  Country: None (occurrence: CA)
  Receive Date: 20190911
  Receipt Date: 20190911
  Transmission Date: 20191005
  Serious: Yes (Other)
  Sender: FDA-Public Use
  Company Number: CA-ABBVIE-19K-028-2915359-00

PATIENT
  Sex: Female

DRUGS (1)
  1. HUMIRA [Suspect]
     Active Substance: ADALIMUMAB
     Indication: RHEUMATOID ARTHRITIS
     Route: 058
     Dates: start: 20091108

REACTIONS (5)
  - Osteoarthritis [Not Recovered/Not Resolved]
  - Benign breast neoplasm [Unknown]
  - Essential thrombocythaemia [Not Recovered/Not Resolved]
  - Basal cell carcinoma [Not Recovered/Not Resolved]
  - Bone cancer [Not Recovered/Not Resolved]

NARRATIVE: CASE EVENT DATE: 2016
